FAERS Safety Report 6330972-X (Version None)
Quarter: 2009Q3

REPORT INFORMATION
  Report Type: 
  Country: None (occurrence: None)
  Receive Date: 20090827
  Receipt Date: 20090821
  Transmission Date: 20100115
  Serious: Yes (Other)
  Sender: FDA-Public Use
  Company Number: US-ELI_LILLY_AND_COMPANY-US200908004670

PATIENT
  Sex: Female

DRUGS (9)
  1. HUMALOG [Suspect]
     Dosage: UNK, AS NEEDED
  2. CELEBREX [Concomitant]
  3. CARBA [Concomitant]
  4. BONIVA [Concomitant]
  5. TRIHEXYPHENIDYL HCL [Concomitant]
  6. BOTOX [Concomitant]
  7. VITAMIN D [Concomitant]
  8. PATADAY [Concomitant]
  9. LANTUS [Concomitant]

REACTIONS (8)
  - ARTHRITIS [None]
  - ARTHROPATHY [None]
  - BLOOD GLUCOSE DECREASED [None]
  - BLOOD GLUCOSE INCREASED [None]
  - DYSPEPSIA [None]
  - HYPERGLYCAEMIA [None]
  - HYPOGLYCAEMIA [None]
  - INFECTION [None]
